FAERS Safety Report 23909477 (Version 1)
Quarter: 2024Q2

REPORT INFORMATION
  Report Type: Report from Study
  Country: US (occurrence: US)
  Receive Date: 20240528
  Receipt Date: 20240528
  Transmission Date: 20240716
  Serious: Yes (Death, Other)
  Sender: FDA-Public Use
  Company Number: US-PFIZER INC-PV202400068481

PATIENT

DRUGS (2)
  1. CARBOPLATIN [Suspect]
     Active Substance: CARBOPLATIN
     Indication: Germ cell cancer
     Dosage: 700 MG/M2, CYCLIC, 5, 4, AND 3 DAYS BEFORE THE INFUSION
     Route: 042
  2. ETOPOSIDE [Suspect]
     Active Substance: ETOPOSIDE
     Indication: Germ cell cancer
     Dosage: 750 MG/M2, CYCLIC, 5, 4, AND 3 DAYS BEFORE THE INFUSION
     Route: 042

REACTIONS (2)
  - Febrile neutropenia [Fatal]
  - Bacteraemia [Fatal]
